FAERS Safety Report 25740449 (Version 3)
Quarter: 2025Q4

REPORT INFORMATION
  Report Type: Spontaneous
  Country: GB (occurrence: GB)
  Receive Date: 20250829
  Receipt Date: 20251117
  Transmission Date: 20260117
  Serious: Yes (Hospitalization)
  Sender: MYLAN
  Company Number: GB-MYLANLABS-2025M1072832

PATIENT
  Age: 39 Year
  Sex: Female
  Weight: 74.2 kg

DRUGS (11)
  1. CLOZAPINE [Suspect]
     Active Substance: CLOZAPINE
     Indication: Schizophrenia
     Dosage: UNK, BID (250 MILLIGRAM MORNING 300 MILLIGRAM NIGHT)
     Dates: start: 20180222, end: 20250822
  2. CLOZAPINE [Suspect]
     Active Substance: CLOZAPINE
     Dosage: UNK, BID (REDUCED TO 175 MG AND 200 MG)
     Dates: start: 20250822, end: 20251031
  3. CLOZAPINE [Suspect]
     Active Substance: CLOZAPINE
     Dosage: UNK, BID (INCREASED TO 200MG AND 225MG)
     Dates: start: 20251031
  4. SERTRALINE [Concomitant]
     Active Substance: SERTRALINE HYDROCHLORIDE
     Dosage: 100 MILLIGRAM, QD (100MG OD)
  5. SERTRALINE [Concomitant]
     Active Substance: SERTRALINE HYDROCHLORIDE
     Dosage: 200 MILLIGRAM, QD (200MG OD)
  6. LANSOPRAZOLE [Concomitant]
     Active Substance: LANSOPRAZOLE
     Dosage: 30 MILLIGRAM, QD (30MG OD)
  7. LAMOTRIGINE [Concomitant]
     Active Substance: LAMOTRIGINE
     Dosage: 75 MILLIGRAM, BID (75MG BD)
  8. CHOLECALCIFEROL [Concomitant]
     Active Substance: CHOLECALCIFEROL
     Dosage: UNK, QD (1600 UNITS OD)
  9. POLYETHYLENE GLYCOL 3350\POTASSIUM CHLORIDE\SODIUM BICARBONATE\SODIUM [Concomitant]
     Active Substance: POLYETHYLENE GLYCOL 3350\POTASSIUM CHLORIDE\SODIUM BICARBONATE\SODIUM CHLORIDE
     Dosage: UNK, PRN (1 SACHET PRN)
  10. LEVOTHYROXINE [Concomitant]
     Active Substance: LEVOTHYROXINE
     Dosage: 75 MICROGRAM, QD (75MG OD)
  11. SENNA [Concomitant]
     Active Substance: SENNOSIDES
     Dosage: 15 MILLIGRAM, PM (15MG OD NIGHT)

REACTIONS (4)
  - Pyelonephritis [Recovered/Resolved]
  - Antipsychotic drug level increased [Recovered/Resolved]
  - Constipation [Recovered/Resolved]
  - Liver function test abnormal [Recovered/Resolved]

NARRATIVE: CASE EVENT DATE: 20221010
